FAERS Safety Report 9335154 (Version 2)
Quarter: 2014Q1

REPORT INFORMATION
  Report Type: Spontaneous
  Country: AT (occurrence: AT)
  Receive Date: 20130606
  Receipt Date: 20140214
  Transmission Date: 20141002
  Serious: Yes (Other)
  Sender: FDA-Public Use
  Company Number: AT-PFIZER INC-2013170778

PATIENT
  Age: 71 Year
  Sex: Female
  Weight: 96.8 kg

DRUGS (18)
  1. LYRICA [Suspect]
     Dosage: 25 MG, UNK
     Dates: start: 20130206, end: 20130213
  2. LYRICA [Suspect]
     Dosage: 50 MG, UNK
     Dates: start: 20130214, end: 20130217
  3. LYRICA [Suspect]
     Dosage: 75 MG, UNK
     Dates: start: 20130218, end: 20130218
  4. CYMBALTA [Suspect]
     Dosage: 60 MG, UNK
     Dates: start: 201209, end: 20130212
  5. CYMBALTA [Suspect]
     Dosage: 120 MG, UNK
     Dates: start: 20130213
  6. MIRTABENE [Suspect]
     Dosage: 45 MG, UNK
     Dates: start: 201211, end: 20130212
  7. MIRTABENE [Suspect]
     Dosage: 60 MG, UNK
     Dates: start: 20130213
  8. ZOLDEM [Concomitant]
     Dosage: 10 MG, UNK
     Dates: start: 20130114
  9. XANOR [Concomitant]
     Dosage: 1 MG, UNK
     Dates: start: 201209, end: 20130108
  10. XANOR [Concomitant]
     Dosage: 1.25 UNK, UNK
     Dates: start: 20130109, end: 20130109
  11. XANOR [Concomitant]
     Dosage: 1 MG, UNK
     Dates: start: 20130110, end: 20130205
  12. XANOR [Concomitant]
     Dosage: 0.75 MG, UNK
     Dates: start: 20130206, end: 20130213
  13. XANOR [Concomitant]
     Dosage: 0.5 MG, UNK
     Dates: start: 20130214, end: 20130217
  14. XANOR [Concomitant]
     Dosage: 0.25 MG, UNK
     Dates: start: 20130218, end: 20130218
  15. MUTAFLOR [Concomitant]
     Dosage: 2 DF, UNK
     Dates: start: 201209
  16. OPTIFIBRE [Concomitant]
     Dosage: 1 DF, UNK
     Dates: start: 201209
  17. COLDAN [Concomitant]
     Dosage: 3 GTT, UNK
     Dates: start: 201209
  18. MOTRIM [Concomitant]
     Dosage: 400 MG, UNK
     Dates: start: 20130212, end: 20130219

REACTIONS (2)
  - Action tremor [Recovered/Resolved]
  - Diarrhoea [Unknown]
